FAERS Safety Report 7043763-1 (Version None)
Quarter: 2010Q4

REPORT INFORMATION
  Report Type: 
  Country: None (occurrence: None)
  Receive Date: 20101008
  Receipt Date: 20100930
  Transmission Date: 20110411
  Serious: Yes (Other)
  Sender: FDA-Public Use
  Company Number: 2010US004121

PATIENT
  Age: 16 Month
  Sex: Female
  Weight: 10 kg

DRUGS (1)
  1. AMBISOME [Suspect]
     Indication: VISCERAL LEISHMANIASIS
     Dosage: 10 MG/KG, /D, IV NOS
     Route: 042
     Dates: start: 20100909, end: 20100910

REACTIONS (4)
  - GENERAL PHYSICAL CONDITION ABNORMAL [None]
  - HYPOTENSION [None]
  - HYPOTHERMIA [None]
  - PERIPHERAL COLDNESS [None]
